FAERS Safety Report 9121888 (Version 1)
Quarter: 2013Q1

REPORT INFORMATION
  Report Type: Spontaneous
  Country: US (occurrence: None)
  Receive Date: 20130125
  Receipt Date: 20130125
  Transmission Date: 20140127
  Serious: No
  Sender: FDA-Public Use
  Company Number: 2012US-004390

PATIENT
  Sex: Female

DRUGS (3)
  1. OMONTYS (PEGINESATIDE) SOLUTION FOR INJECTION [Suspect]
     Indication: NEPHROGENIC ANAEMIA
     Route: 042
     Dates: start: 20120911, end: 20120911
  2. VENOFER [Concomitant]
  3. INSULIN (INSULIN) [Concomitant]

REACTIONS (3)
  - Feeling abnormal [None]
  - Gait disturbance [None]
  - Vision blurred [None]
